FAERS Safety Report 20235319 (Version 1)
Quarter: 2021Q4

REPORT INFORMATION
  Report Type: Spontaneous
  Country: None (occurrence: US)
  Receive Date: 20211228
  Receipt Date: 20211228
  Transmission Date: 20220303
  Serious: No
  Sender: FDA-Public Use
  Company Number: US-BIOLOGICAL E. LTD-2123410

PATIENT
  Sex: Female

DRUGS (1)
  1. FOSAPREPITANT [Suspect]
     Active Substance: FOSAPREPITANT
     Indication: Chemotherapy
     Route: 065
     Dates: start: 20211122, end: 20211122

REACTIONS (2)
  - Flushing [Unknown]
  - Tachycardia [Unknown]

NARRATIVE: CASE EVENT DATE: 20211122
